FAERS Safety Report 5483710-7 (Version None)
Quarter: 2007Q4

REPORT INFORMATION
  Report Type: 
  Country: None (occurrence: None)
  Receive Date: 20071009
  Receipt Date: 20071009
  Transmission Date: 20080405
  Serious: Yes (Life-Threatening)
  Sender: FDA-Public Use
  Company Number: None

PATIENT
  Age: 60 Year
  Sex: Male

DRUGS (1)
  1. AZITHROMYCIN [Suspect]
     Indication: PNEUMONIA
     Dosage: IV
     Route: 042
     Dates: start: 20070506, end: 20070507

REACTIONS (4)
  - CARDIO-RESPIRATORY ARREST [None]
  - PALPITATIONS [None]
  - TACHYCARDIA [None]
  - TORSADE DE POINTES [None]
